FAERS Safety Report 7386179-0 (Version None)
Quarter: 2011Q1

REPORT INFORMATION
  Report Type: 
  Country: None (occurrence: None)
  Receive Date: 20110329
  Receipt Date: 20110329
  Transmission Date: 20110831
  Serious: Yes (Other)
  Sender: FDA-Public Use
  Company Number: None

PATIENT
  Sex: Female
  Weight: 65.7716 kg

DRUGS (1)
  1. ALENDRONATE 70 MG COBALT LABORATORIES [Suspect]
     Indication: BONE DENSITY DECREASED
     Dosage: 1 WEEKLY PO
     Route: 048
     Dates: start: 20110310, end: 20110310

REACTIONS (7)
  - MUSCULOSKELETAL PAIN [None]
  - MUSCULOSKELETAL CHEST PAIN [None]
  - VOMITING [None]
  - PAIN IN EXTREMITY [None]
  - DIZZINESS [None]
  - BONE PAIN [None]
  - MOVEMENT DISORDER [None]
